FAERS Safety Report 6967586-4 (Version None)
Quarter: 2010Q3

REPORT INFORMATION
  Report Type: 
  Country: None (occurrence: None)
  Receive Date: 20100907
  Receipt Date: 20100827
  Transmission Date: 20110219
  Serious: Yes (Other)
  Sender: FDA-Public Use
  Company Number: KR-PFIZER INC-2010107977

PATIENT
  Sex: Male

DRUGS (4)
  1. CARDURA [Suspect]
     Dosage: UNK
     Route: 048
  2. DITRUSITOL [Suspect]
     Dosage: UNK
     Route: 048
  3. HYTRIN [Suspect]
     Dosage: UNK
     Route: 048
  4. FINASTERIDE [Suspect]
     Dosage: UNK
     Route: 048

REACTIONS (2)
  - URINARY INCONTINENCE [None]
  - URINARY RETENTION [None]
